FAERS Safety Report 9319397 (Version 1)
Quarter: 2013Q2

REPORT INFORMATION
  Report Type: Spontaneous
  Country: US (occurrence: None)
  Receive Date: 20130524
  Receipt Date: 20130524
  Transmission Date: 20140414
  Serious: Yes (Hospitalization)
  Sender: FDA-Public Use
  Company Number: 2013HINLIT0092

PATIENT
  Age: 27 Year
  Sex: Male

DRUGS (2)
  1. LITHIUM (LITHIUM) UNKNOWN [Suspect]
     Indication: DEPRESSION
     Dosage: 600MG, TID
  2. SODIUM VALPROATE (SODIUM VALPROATE) [Concomitant]

REACTIONS (1)
  - Sinus bradycardia [None]
